FAERS Safety Report 20068015 (Version 1)
Quarter: 2021Q4

REPORT INFORMATION
  Report Type: Other
  Country: ES (occurrence: None)
  Receive Date: 20211115
  Receipt Date: 20211115
  Transmission Date: 20220303
  Serious: Yes (Other)
  Sender: FDA-Public Use
  Company Number: ES-ROCHE-2954650

PATIENT

DRUGS (1)
  1. RITUXIMAB [Suspect]
     Active Substance: RITUXIMAB
     Indication: Multiple sclerosis
     Route: 065

REACTIONS (5)
  - Cervix carcinoma [Unknown]
  - Urinary tract infection [Unknown]
  - Respiratory tract infection bacterial [Unknown]
  - Tremor [Unknown]
  - Serum sickness-like reaction [Unknown]
